FAERS Safety Report 25135638 (Version 1)
Quarter: 2025Q1

REPORT INFORMATION
  Report Type: Report from Study
  Country: US (occurrence: US)
  Receive Date: 20250328
  Receipt Date: 20250328
  Transmission Date: 20250409
  Serious: Yes (Other)
  Sender: ALEXION PHARMACEUTICALS
  Company Number: US-AstraZeneca-CH-00834015A

PATIENT

DRUGS (3)
  1. IMFINZI [Suspect]
     Active Substance: DURVALUMAB
     Indication: Product used for unknown indication
     Route: 065
  2. CARBOPLATIN [Suspect]
     Active Substance: CARBOPLATIN
     Indication: Product used for unknown indication
     Route: 065
  3. TREMELIMUMAB [Suspect]
     Active Substance: TREMELIMUMAB
     Indication: Product used for unknown indication
     Route: 065

REACTIONS (1)
  - Disease progression [Unknown]
